FAERS Safety Report 25981539 (Version 1)
Quarter: 2025Q4

REPORT INFORMATION
  Report Type: Spontaneous
  Country: US (occurrence: US)
  Receive Date: 20251030
  Receipt Date: 20251030
  Transmission Date: 20260117
  Serious: No
  Sender: UPSHER SMITH LABORATORIES
  Company Number: US-UPSHER-SMITH LABORATORIES, LLC-20250500876

PATIENT
  Age: 69 Year
  Sex: Female

DRUGS (2)
  1. JANTOVEN [Suspect]
     Active Substance: WARFARIN SODIUM
     Indication: Thrombosis
     Dosage: 1 DOSAGE FORM, DAILY, 1/2 TABLET THE NEXT DAY ROTATING
     Route: 048
     Dates: start: 20250418, end: 2025
  2. JANTOVEN [Suspect]
     Active Substance: WARFARIN SODIUM
     Dosage: 1 TABLET BY MOUTH DAILY 1/2 TABLET THE NEXT DAY ROTATING
     Route: 048
     Dates: start: 20250503, end: 20250522

REACTIONS (5)
  - Peripheral swelling [Not Recovered/Not Resolved]
  - Palpitations [Recovering/Resolving]
  - Swelling [Unknown]
  - Headache [Recovering/Resolving]
  - Pain [Unknown]

NARRATIVE: CASE EVENT DATE: 20250522
